FAERS Safety Report 5507633-X (Version None)
Quarter: 2007Q4

REPORT INFORMATION
  Report Type: 
  Country: None (occurrence: None)
  Receive Date: 20071102
  Receipt Date: 20071019
  Transmission Date: 20080405
  Serious: Yes (Life-Threatening)
  Sender: FDA-Public Use
  Company Number: DSU-2007-00793

PATIENT
  Age: 75 Year
  Sex: Female

DRUGS (2)
  1. OLMESARTAN MEDOXOMIL [Suspect]
     Indication: HYPERTENSION
     Dosage: 20 MG (20 MG, QD), PER ORAL
     Route: 048
  2. ENALAPRIL (ENALAPRIL) (ENALAPRIL) [Concomitant]

REACTIONS (1)
  - THROMBOSIS [None]
